FAERS Safety Report 4957241-4 (Version None)
Quarter: 2006Q1

REPORT INFORMATION
  Report Type: 
  Country: None (occurrence: None)
  Receive Date: 20060329
  Receipt Date: 20060322
  Transmission Date: 20060701
  Serious: Yes (Hospitalization)
  Sender: FDA-Public Use
  Company Number: AU-MERCK-0603AUS00181

PATIENT
  Age: 76 Year
  Sex: Female

DRUGS (6)
  1. ALDOMET [Suspect]
     Route: 048
  2. PREDNISOLONE [Concomitant]
     Route: 065
  3. CALCIUM CARBONATE [Concomitant]
     Route: 065
  4. ACETAMINOPHEN [Concomitant]
     Route: 065
  5. LATANOPROST [Concomitant]
     Route: 065
  6. DIAZEPAM [Concomitant]
     Route: 065

REACTIONS (3)
  - MALAISE [None]
  - PNEUMONIA [None]
  - SOMNOLENCE [None]
